FAERS Safety Report 7455022-3 (Version None)
Quarter: 2011Q2

REPORT INFORMATION
  Report Type: 
  Country: None (occurrence: None)
  Receive Date: 20110503
  Receipt Date: 20110429
  Transmission Date: 20111010
  Serious: Yes (Other)
  Sender: FDA-Public Use
  Company Number: US-PFIZER INC-2011010201

PATIENT
  Sex: Female
  Weight: 80.72 kg

DRUGS (2)
  1. TOVIAZ [Suspect]
     Dosage: 4 MG, 2X/DAY
  2. TOVIAZ [Suspect]
     Indication: URINARY INCONTINENCE
     Dosage: 8 MG, 1X/DAY
     Route: 048
     Dates: start: 20110113, end: 20110401

REACTIONS (1)
  - BLOOD PRESSURE DECREASED [None]
